FAERS Safety Report 15317560 (Version 1)
Quarter: 2018Q3

REPORT INFORMATION
  Report Type: Spontaneous
  Country: SE (occurrence: SE)
  Receive Date: 20180824
  Receipt Date: 20180824
  Transmission Date: 20181010
  Serious: Yes (Life-Threatening, Hospitalization, Disabling)
  Sender: FDA-Public Use
  Company Number: SE-ROCHE-2174420

PATIENT
  Age: 80 Year
  Sex: Female

DRUGS (2)
  1. ROACTEMRA [Suspect]
     Active Substance: TOCILIZUMAB
     Indication: RHEUMATOID ARTHRITIS
     Route: 058
     Dates: start: 20150615, end: 20170625
  2. PREDNISOLONE. [Suspect]
     Active Substance: PREDNISOLONE
     Indication: TEMPORAL ARTERITIS
     Route: 065
     Dates: start: 20060101

REACTIONS (2)
  - Infected skin ulcer [Recovered/Resolved with Sequelae]
  - Leg amputation [Recovered/Resolved with Sequelae]

NARRATIVE: CASE EVENT DATE: 20170625
